FAERS Safety Report 7375670-9 (Version None)
Quarter: 2011Q1

REPORT INFORMATION
  Report Type: 
  Country: None (occurrence: None)
  Receive Date: 20110325
  Receipt Date: 20110316
  Transmission Date: 20110831
  Serious: Yes (Other)
  Sender: FDA-Public Use
  Company Number: NL-JNJFOC-20110309261

PATIENT

DRUGS (6)
  1. TAVANIC [Concomitant]
  2. ACENOCOUMAROL [Interacting]
     Indication: PRODUCT USED FOR UNKNOWN INDICATION
     Route: 048
  3. SOTALOL HCL [Concomitant]
  4. TRAMADOL HCL [Suspect]
     Indication: PRODUCT USED FOR UNKNOWN INDICATION
     Route: 065
  5. PANADOL CODEINE [Concomitant]
  6. DIAZEPAM [Concomitant]

REACTIONS (2)
  - DRUG INTERACTION [None]
  - INTERNATIONAL NORMALISED RATIO INCREASED [None]
